FAERS Safety Report 10069388 (Version 3)
Quarter: 2014Q2

REPORT INFORMATION
  Report Type: Report from Study
  Country: CA (occurrence: CA)
  Receive Date: 20140410
  Receipt Date: 20140424
  Transmission Date: 20141212
  Serious: Yes (Other)
  Sender: FDA-Public Use
  Company Number: CA-ROCHE-1235148

PATIENT
  Age: 69 Year
  Sex: Female
  Weight: 62.6 kg

DRUGS (21)
  1. RITUXAN [Suspect]
     Indication: RHEUMATOID ARTHRITIS
     Dosage: LAST DOSE ON 25/JUL/2013
     Route: 042
     Dates: start: 20121129
  2. NEXIUM [Concomitant]
  3. ALENDRONATE [Concomitant]
  4. SYNTHROID [Concomitant]
  5. PAROXETINE [Concomitant]
  6. MIRTAZAPINE [Concomitant]
  7. ASA [Concomitant]
  8. ATORVASTATIN [Concomitant]
  9. CELEBREX [Concomitant]
  10. ADVAIR [Concomitant]
  11. SPIRIVA [Concomitant]
  12. FLOVENT [Concomitant]
  13. SALVENT [Concomitant]
  14. SENNA - EXTRA [Concomitant]
  15. DOCUSATE [Concomitant]
  16. ACETAMINOPHEN [Concomitant]
     Indication: PREMEDICATION
     Route: 048
     Dates: start: 20121129
  17. BROMAZEPAM [Concomitant]
  18. MORPHINE [Concomitant]
  19. NAPROXEN [Concomitant]
  20. DIPHENHYDRAMINE HCL [Concomitant]
     Indication: PREMEDICATION
     Route: 048
     Dates: start: 20121129
  21. METHYLPREDNISOLONE [Concomitant]
     Indication: PREMEDICATION
     Route: 042
     Dates: start: 20121129

REACTIONS (10)
  - Lung neoplasm malignant [Unknown]
  - Joint swelling [Not Recovered/Not Resolved]
  - Weight increased [Not Recovered/Not Resolved]
  - Arthralgia [Not Recovered/Not Resolved]
  - Back pain [Not Recovered/Not Resolved]
  - Pain in extremity [Not Recovered/Not Resolved]
  - Musculoskeletal pain [Not Recovered/Not Resolved]
  - Arthralgia [Not Recovered/Not Resolved]
  - Bronchitis [Unknown]
  - Laryngitis [Not Recovered/Not Resolved]
